FAERS Safety Report 17214117 (Version 1)
Quarter: 2019Q4

REPORT INFORMATION
  Report Type: Spontaneous
  Country: US (occurrence: US)
  Receive Date: 20191230
  Receipt Date: 20191230
  Transmission Date: 20200122
  Serious: No
  Sender: FDA-Public Use
  Company Number: US-PFIZER INC-2019413044

PATIENT
  Age: 38 Year
  Sex: Female
  Weight: 102 kg

DRUGS (4)
  1. LYRICA [Suspect]
     Active Substance: PREGABALIN
     Indication: HAEMANGIOMA
     Dosage: 100 MG, 3X/DAY
     Route: 048
     Dates: start: 20191203
  2. LYRICA [Suspect]
     Active Substance: PREGABALIN
     Indication: CENTRAL PAIN SYNDROME
     Dosage: 100 MG, 3X/DAY
     Route: 048
  3. GABAPENTIN. [Concomitant]
     Active Substance: GABAPENTIN
     Dosage: UNK
  4. LYRICA [Suspect]
     Active Substance: PREGABALIN
     Indication: SPINAL CORD DISORDER
     Dosage: 150 MG, 3X/DAY
     Route: 048

REACTIONS (6)
  - Nasopharyngitis [Recovering/Resolving]
  - Therapeutic product effect incomplete [Unknown]
  - Joint swelling [Recovering/Resolving]
  - Nasal congestion [Unknown]
  - Cough [Unknown]
  - Peripheral swelling [Recovering/Resolving]

NARRATIVE: CASE EVENT DATE: 201911
